FAERS Safety Report 21331915 (Version 4)
Quarter: 2022Q4

REPORT INFORMATION
  Report Type: Other
  Country: GB (occurrence: GB)
  Receive Date: 20220914
  Receipt Date: 20221221
  Transmission Date: 20230112
  Serious: Yes (Other)
  Sender: FDA-Public Use
  Company Number: GB-GLENMARK PHARMACEUTICALS-2022GMK075000

PATIENT

DRUGS (15)
  1. GABAPENTIN [Interacting]
     Active Substance: GABAPENTIN
     Indication: Product used for unknown indication
     Dosage: 3600 MILLIGRAM, QD (4 DOSES OF 300 MG THREE TIMES A DAY, OVER 10 YEARS)
     Route: 065
  2. GABAPENTIN [Interacting]
     Active Substance: GABAPENTIN
     Dosage: 900 MILLIGRAM, QD (THREE CAPSULE THREE TIME A DAY)
     Route: 065
  3. CLONAZEPAM [Interacting]
     Active Substance: CLONAZEPAM
     Indication: Product used for unknown indication
     Dosage: 0.5 MILLIGRAM; 1 - 4 TIMES A DAY, OVER 10 YEARS
     Route: 065
     Dates: end: 20191111
  4. BACLOFEN [Interacting]
     Active Substance: BACLOFEN
     Indication: Product used for unknown indication
     Dosage: 40 MILLIGRAM, QD (1-4 TIMES A DAY OF 10 MG, OVER 10 YEARS)
     Route: 065
     Dates: end: 20191111
  5. BACLOFEN [Interacting]
     Active Substance: BACLOFEN
     Dosage: 10 MILLIGRAM, (1 - 4 TIMES A DAY = 40MG, OVER 10 YEARS)
     Route: 065
     Dates: end: 20191111
  6. TRAMADOL [Interacting]
     Active Substance: TRAMADOL
     Indication: Product used for unknown indication
     Dosage: 200 MILLIGRAM, QD (1 - 4 TIMES A DAY OF 50 MG= 200MG, OVER 10 YEARS)
     Route: 065
     Dates: end: 20191111
  7. TRAMADOL [Interacting]
     Active Substance: TRAMADOL
     Dosage: 50 MILLIGRAM, (1 - 4 TIMES A DAY OF 50 MG= 200MG, OVER 10 YEARS)
     Route: 065
     Dates: end: 20191111
  8. ISOSORBIDE MONONITRATE [Interacting]
     Active Substance: ISOSORBIDE MONONITRATE
     Indication: Product used for unknown indication
     Dosage: 40 MILLIGRAM, BID (80 MG, OVER 10 YEARS)
     Route: 065
  9. SERTRALINE [Interacting]
     Active Substance: SERTRALINE HYDROCHLORIDE
     Indication: Product used for unknown indication
     Dosage: 100 MILLIGRAM, BID (200MG, OVER 10 YEARS)
     Route: 065
  10. ASPIRIN [Interacting]
     Active Substance: ASPIRIN
     Indication: Product used for unknown indication
     Dosage: 75 MILLIGRAM, OD (1 A DAY OVER 10 YEARS. TOTAL PER DAY 4,625 MG A DAY/10 YEAR)
     Route: 065
  11. ATENOLOL [Interacting]
     Active Substance: ATENOLOL
     Indication: Product used for unknown indication
     Dosage: 100 MILLIGRAM, OD (1 A DAY OVER 10 YEARS)
     Route: 065
  12. ATORVASTATIN [Interacting]
     Active Substance: ATORVASTATIN
     Indication: Product used for unknown indication
     Dosage: 20 MILLIGRAM, OD (1 A DAY OVER 10 YEARS)
     Route: 065
  13. AMLODIPINE [Interacting]
     Active Substance: AMLODIPINE BESYLATE
     Indication: Product used for unknown indication
     Dosage: 10 MILLIGRAM, OD (1 A DAY OVER 10 YEARS)
     Route: 065
  14. ALLOPURINOL [Interacting]
     Active Substance: ALLOPURINOL
     Indication: Product used for unknown indication
     Dosage: 300 MILLIGRAM, OD (1 A DAY OVER 10 YEARS)
     Route: 065
  15. LISINOPRIL [Interacting]
     Active Substance: LISINOPRIL
     Indication: Product used for unknown indication
     Dosage: 20 MILLIGRAM, OD (1 A DAY OVER 10 YEARS)
     Route: 065

REACTIONS (9)
  - Drug interaction [Unknown]
  - Confusion postoperative [Recovered/Resolved]
  - Agitation postoperative [Recovered/Resolved]
  - Muscle spasms [Recovered/Resolved]
  - Abnormal dreams [Recovered/Resolved]
  - Coordination abnormal [Recovered/Resolved]
  - Insomnia [Recovered/Resolved]
  - Visual impairment [Recovered/Resolved]
  - Headache [Recovered/Resolved]

NARRATIVE: CASE EVENT DATE: 20191024
